FAERS Safety Report 6834321-X (Version None)
Quarter: 2010Q3

REPORT INFORMATION
  Report Type: 
  Country: None (occurrence: None)
  Receive Date: 20100712
  Receipt Date: 20070621
  Transmission Date: 20110219
  Serious: No
  Sender: FDA-Public Use
  Company Number: US-PFIZER INC-2007029991

PATIENT
  Sex: Female
  Weight: 90.7 kg

DRUGS (16)
  1. CHANTIX [Suspect]
     Indication: SMOKING CESSATION THERAPY
     Dates: start: 20070406, end: 20070621
  2. CHANTIX [Suspect]
     Indication: TOBACCO ABUSE
  3. REGLAN [Concomitant]
  4. PREVACID [Concomitant]
  5. VALSARTAN [Concomitant]
  6. NORCO [Concomitant]
  7. NEURONTIN [Concomitant]
  8. KLONOPIN [Concomitant]
  9. DRUG, UNSPECIFIED [Concomitant]
     Indication: BIPOLAR DISORDER
  10. ANTIHYPERTENSIVES [Concomitant]
     Indication: HYPERTENSION
  11. DRUG, UNSPECIFIED [Concomitant]
     Indication: LIPIDS
  12. DRUG, UNSPECIFIED [Concomitant]
     Indication: OSTEOARTHRITIS
  13. DRUG, UNSPECIFIED [Concomitant]
     Indication: DIABETES MELLITUS
  14. DRUG, UNSPECIFIED [Concomitant]
     Indication: IMPAIRED GASTRIC EMPTYING
  15. DRUG, UNSPECIFIED [Concomitant]
     Indication: CHRONIC OBSTRUCTIVE PULMONARY DISEASE
  16. INSULIN [Concomitant]

REACTIONS (4)
  - GLOSSODYNIA [None]
  - NAUSEA [None]
  - SOMATISATION DISORDER [None]
  - WEIGHT INCREASED [None]
